FAERS Safety Report 15551215 (Version 11)
Quarter: 2025Q2

REPORT INFORMATION
  Report Type: Spontaneous
  Country: US (occurrence: US)
  Receive Date: 20181025
  Receipt Date: 20250612
  Transmission Date: 20250717
  Serious: Yes (Death, Hospitalization, Other)
  Sender: PFIZER
  Company Number: US-PFIZER INC-2015152352

PATIENT
  Age: 46 Year
  Sex: Male
  Weight: 68.481 kg

DRUGS (5)
  1. XYNTHA [Suspect]
     Active Substance: MOROCTOCOG ALFA
     Indication: Factor VIII deficiency
     Route: 042
  2. XYNTHA [Suspect]
     Active Substance: MOROCTOCOG ALFA
  3. XYNTHA [Suspect]
     Active Substance: MOROCTOCOG ALFA
     Dosage: 2000 IU, ALTERNATE DAY
  4. XYNTHA [Suspect]
     Active Substance: MOROCTOCOG ALFA
     Dosage: 2000 IU, 2X/DAY
  5. XYNTHA [Suspect]
     Active Substance: MOROCTOCOG ALFA
     Route: 042

REACTIONS (10)
  - Death [Fatal]
  - Seizure [Unknown]
  - Pyrexia [Unknown]
  - Hypertension [Unknown]
  - Epilepsy [Recovered/Resolved]
  - Haemorrhage [Recovered/Resolved]
  - Nephrolithiasis [Unknown]
  - Wheelchair user [Unknown]
  - Arthralgia [Unknown]
  - Joint swelling [Unknown]

NARRATIVE: CASE EVENT DATE: 20250323
